FAERS Safety Report 5853250-1 (Version None)
Quarter: 2008Q3

REPORT INFORMATION
  Report Type: 
  Country: None (occurrence: None)
  Receive Date: 20080820
  Receipt Date: 20080804
  Transmission Date: 20090109
  Serious: Yes (Hospitalization)
  Sender: FDA-Public Use
  Company Number: 002#2#2008-00356

PATIENT
  Age: 78 Year
  Sex: Male
  Weight: 78.9259 kg

DRUGS (8)
  1. NEUPRO [Suspect]
     Indication: RESTLESS LEGS SYNDROME
     Dosage: 2MG/24H, 1 IN 1 D, TRANSDERMAL, 4MG/24H, 1 IN 1 D, TRANSDERMAL, 6MG/24H, 1 IN 1 D, TRANSDERMAL
     Route: 062
     Dates: start: 20071201
  2. LOVASTATIN [Concomitant]
  3. LISINOPRIL [Concomitant]
  4. METOPROLOL TARTRATE [Concomitant]
  5. TRIAMTERENE AND HYDROCHLOROTHIAZIDE [Concomitant]
  6. FOLIC ACID [Concomitant]
  7. VIT B12 [Concomitant]
  8. OXYCODONE HCL [Concomitant]

REACTIONS (6)
  - ACCIDENT [None]
  - CONCUSSION [None]
  - FALL [None]
  - INCORRECT DRUG ADMINISTRATION DURATION [None]
  - SUBDURAL HAEMATOMA [None]
  - TREMOR [None]
